FAERS Safety Report 17520612 (Version 1)
Quarter: 2020Q1

REPORT INFORMATION
  Report Type: Spontaneous
  Country: US (occurrence: US)
  Receive Date: 20200310
  Receipt Date: 20200310
  Transmission Date: 20200409
  Serious: Yes (Hospitalization, Other)
  Sender: FDA-Public Use
  Company Number: US-BAYER-2020-040223

PATIENT
  Age: 6 Year
  Sex: Male

DRUGS (16)
  1. BIOTIN [Concomitant]
     Active Substance: BIOTIN
     Dosage: UNK
  2. LUVOX [Concomitant]
     Active Substance: FLUVOXAMINE MALEATE
     Dosage: UNK
  3. MULTIVITAMINS;MINERALS [Concomitant]
     Dosage: UNK
  4. MIRALAX [Suspect]
     Active Substance: POLYETHYLENE GLYCOL 3350
     Indication: CONSTIPATION
  5. PROPRANOLOL [Concomitant]
     Active Substance: PROPRANOLOL HYDROCHLORIDE
     Dosage: UNK
  6. VITAMIN B-6 [Concomitant]
     Active Substance: PYRIDOXINE
     Dosage: UNK
  7. MIRALAX [Suspect]
     Active Substance: POLYETHYLENE GLYCOL 3350
     Indication: GASTROINTESTINAL DISORDER
     Dosage: 0.5 DF, QD
     Route: 048
     Dates: end: 201810
  8. RIBOFLAVIN [Concomitant]
     Active Substance: RIBOFLAVIN
     Dosage: UNK
  9. ANAFRANIL [Concomitant]
     Active Substance: CLOMIPRAMINE HYDROCHLORIDE
     Dosage: UNK
  10. PROMEGA [FISH OIL, HYDROGENATED] [Concomitant]
     Dosage: UNK
  11. ASCORBIC ACID. [Concomitant]
     Active Substance: ASCORBIC ACID
     Dosage: UNK
  12. TOCOPHEROL [Concomitant]
     Active Substance: TOCOPHEROL
     Dosage: UNK
  13. COQ10 [UBIDECARENONE] [Concomitant]
     Active Substance: UBIDECARENONE
     Dosage: UNK
  14. VITAMIN B12 [Concomitant]
     Active Substance: CYANOCOBALAMIN
     Dosage: UNK
  15. FOLATE [Concomitant]
     Active Substance: FOLATE SODIUM
     Dosage: UNK
  16. MAGNESIUM [Concomitant]
     Active Substance: MAGNESIUM
     Dosage: UNK

REACTIONS (6)
  - Underweight [Recovering/Resolving]
  - Abdominal discomfort [Recovering/Resolving]
  - Brain injury [Unknown]
  - Aggression [Recovered/Resolved]
  - Product use in unapproved indication [Unknown]
  - Off label use [Unknown]
